FAERS Safety Report 5398676-8 (Version None)
Quarter: 2007Q3

REPORT INFORMATION
  Report Type: 
  Country: None (occurrence: None)
  Receive Date: 20070726
  Receipt Date: 20061206
  Transmission Date: 20080115
  Serious: No
  Sender: FDA-Public Use
  Company Number: US-AMGEN-KDL202966

PATIENT
  Sex: Female

DRUGS (10)
  1. PROCRIT [Suspect]
     Indication: ANAEMIA
  2. LORTAB [Concomitant]
  3. NIFEDIPINE [Concomitant]
  4. ZEMPLAR [Concomitant]
  5. DOXAZOSIN MESYLATE [Concomitant]
  6. VYTORIN [Concomitant]
  7. TRICOR [Concomitant]
  8. SODIUM BICARBONATE [Concomitant]
  9. FLEXERIL [Concomitant]
  10. POTASSIUM CHLORIDE [Concomitant]

REACTIONS (1)
  - INJECTION SITE PAIN [None]
